FAERS Safety Report 14732982 (Version 1)
Quarter: 2018Q2

REPORT INFORMATION
  Report Type: Spontaneous
  Country: AU (occurrence: AU)
  Receive Date: 20180409
  Receipt Date: 20180409
  Transmission Date: 20180711
  Serious: Yes (Hospitalization, Other)
  Sender: FDA-Public Use
  Company Number: AU-ACCORD-065413

PATIENT
  Age: 58 Year
  Sex: Male

DRUGS (1)
  1. CISPLATIN. [Suspect]
     Active Substance: CISPLATIN
     Indication: SQUAMOUS CELL CARCINOMA OF THE TONGUE

REACTIONS (9)
  - Pleural effusion [Recovering/Resolving]
  - Hypotension [Recovering/Resolving]
  - Mitral valve incompetence [Recovering/Resolving]
  - Myocardial fibrosis [Recovering/Resolving]
  - Tricuspid valve incompetence [Recovering/Resolving]
  - Pulmonary hypertension [Recovering/Resolving]
  - Pulmonary congestion [Recovering/Resolving]
  - Cardiomyopathy [Recovering/Resolving]
  - Cardiomegaly [Recovering/Resolving]
